FAERS Safety Report 25143971 (Version 1)
Quarter: 2025Q2

REPORT INFORMATION
  Report Type: Spontaneous
  Country: ES (occurrence: ES)
  Receive Date: 20250401
  Receipt Date: 20250401
  Transmission Date: 20250716
  Serious: Yes (Hospitalization, Other)
  Sender: AUROBINDO
  Company Number: ES-AEMPS-1649665

PATIENT
  Age: 62 Year
  Sex: Female

DRUGS (6)
  1. MOXIFLOXACIN [Suspect]
     Active Substance: MOXIFLOXACIN
     Indication: Sepsis
     Dosage: 400 MILLIGRAM, ONCE A DAY
     Route: 048
     Dates: start: 20241231, end: 20250103
  2. LEVOFLOXACIN [Suspect]
     Active Substance: LEVOFLOXACIN
     Indication: Sepsis
     Dosage: 250 MILLIGRAM, ONCE A DAY
     Route: 048
     Dates: start: 20241224, end: 20241231
  3. ENVARSUS XR [Suspect]
     Active Substance: TACROLIMUS
     Indication: Prophylaxis against transplant rejection
     Dosage: 4 MILLIGRAM, ONCE A DAY
     Route: 048
     Dates: start: 20241130
  4. CELLCEPT [Concomitant]
     Active Substance: MYCOPHENOLATE MOFETIL
     Indication: Prophylaxis against transplant rejection
     Dosage: 1 GRAM, ONCE A DAY
     Route: 048
     Dates: start: 20241130
  5. ASPIRIN [Concomitant]
     Active Substance: ASPIRIN
     Indication: Transient ischaemic attack
     Dosage: 100 MILLIGRAM, ONCE A DAY
     Route: 048
     Dates: start: 201312
  6. PREDNISONE [Concomitant]
     Active Substance: PREDNISONE
     Indication: Prophylaxis against transplant rejection
     Dosage: 5 MILLIGRAM, ONCE A DAY
     Route: 048
     Dates: start: 20241130

REACTIONS (4)
  - Chronic kidney disease [Not Recovered/Not Resolved]
  - Acute kidney injury [Recovered/Resolved]
  - Decreased appetite [Recovered/Resolved]
  - Condition aggravated [Recovered/Resolved]

NARRATIVE: CASE EVENT DATE: 20150101
